FAERS Safety Report 4888392-0 (Version None)
Quarter: 2006Q1

REPORT INFORMATION
  Report Type: 
  Country: None (occurrence: None)
  Receive Date: 20060119
  Receipt Date: 20060119
  Transmission Date: 20060701
  Serious: Yes (Hospitalization)
  Sender: FDA-Public Use
  Company Number: None

PATIENT
  Age: 57 Year
  Sex: Male
  Weight: 60.782 kg

DRUGS (1)
  1. DAPSONE [Suspect]
     Indication: INFECTION
     Dosage: 100MG PO QD
     Route: 048
     Dates: start: 20051005, end: 20051028

REACTIONS (1)
  - HAEMOLYTIC ANAEMIA [None]
